FAERS Safety Report 4570638-X (Version None)
Quarter: 2005Q1

REPORT INFORMATION
  Report Type: 
  Country: None (occurrence: None)
  Receive Date: 20050204
  Receipt Date: 20031209
  Transmission Date: 20050727
  Serious: Yes (Hospitalization)
  Sender: FDA-Public Use
  Company Number: US-JNJFOC-20050107198

PATIENT
  Sex: Female
  Weight: 67.13 kg

DRUGS (9)
  1. DOXIL [Suspect]
     Indication: OVARIAN CANCER
     Route: 042
  2. EPOGEN [Concomitant]
  3. TAXOL [Concomitant]
     Indication: OVARIAN CANCER
  4. CARBOPLATIN [Concomitant]
     Indication: OVARIAN CANCER
  5. ALTACE [Concomitant]
  6. ALTACE [Concomitant]
  7. ALTACE [Concomitant]
     Indication: HYPERTENSION
  8. VIOXX [Concomitant]
  9. PREMARIN [Concomitant]

REACTIONS (22)
  - ARTHRALGIA [None]
  - ASTHENIA [None]
  - BLOOD CREATININE INCREASED [None]
  - BUNDLE BRANCH BLOCK LEFT [None]
  - CONFUSIONAL STATE [None]
  - CONSTIPATION [None]
  - COORDINATION ABNORMAL [None]
  - DIARRHOEA [None]
  - DIZZINESS [None]
  - DYSARTHRIA [None]
  - FACIAL PALSY [None]
  - FLUSHING [None]
  - HYPERTENSION [None]
  - HYPOAESTHESIA [None]
  - NAUSEA [None]
  - PHOTOSENSITIVITY REACTION [None]
  - RENAL FAILURE ACUTE [None]
  - THROMBOCYTOPENIA [None]
  - TRANSIENT ISCHAEMIC ATTACK [None]
  - URINE ABNORMALITY [None]
  - VOMITING [None]
  - WEIGHT DECREASED [None]
